FAERS Safety Report 11512052 (Version 2)
Quarter: 2015Q4

REPORT INFORMATION
  Report Type: Report from Study
  Country: VE (occurrence: VE)
  Receive Date: 20150916
  Receipt Date: 20151229
  Transmission Date: 20160304
  Serious: Yes (Other)
  Sender: FDA-Public Use
  Company Number: VE-ABBVIE-15K-178-1462130-00

PATIENT
  Age: 55 Year
  Sex: Male

DRUGS (1)
  1. HUMIRA [Suspect]
     Active Substance: ADALIMUMAB
     Indication: PSORIASIS
     Route: 058
     Dates: start: 20111123, end: 20150630

REACTIONS (3)
  - Aphonia [Recovered/Resolved]
  - Vocal cord thickening [Not Recovered/Not Resolved]
  - Occupational exposure to toxic agent [Unknown]

NARRATIVE: CASE EVENT DATE: 201508
